FAERS Safety Report 23452195 (Version 1)
Quarter: 2024Q1

REPORT INFORMATION
  Report Type: Spontaneous
  Country: US (occurrence: None)
  Receive Date: 20240127
  Receipt Date: 20240127
  Transmission Date: 20240410
  Serious: Yes (Other)
  Sender: FDA-Public Use
  Company Number: None

PATIENT
  Sex: Female

DRUGS (29)
  1. SKYRIZI [Suspect]
     Active Substance: RISANKIZUMAB-RZAA
     Indication: Psoriatic arthropathy
     Route: 058
  2. AZITHIOPRINE TAB [Concomitant]
  3. BACLOFEN TAB [Concomitant]
  4. CALCIUM/D CAP [Concomitant]
  5. CHLORZOXAZON TAB [Concomitant]
  6. DEXCOM G6 MIS RECEIVER [Concomitant]
  7. DICLOFENAC TAB 75 [Concomitant]
  8. FIBER FORMUL CAP [Concomitant]
  9. FISH OIL CAP [Concomitant]
  10. FLUCONAZOLE TAB [Concomitant]
  11. FOLIC ACID [Concomitant]
  12. GABAPENTIN CAP [Concomitant]
  13. IBUPROFEN TAB [Concomitant]
  14. LIDOCAINE SOL [Concomitant]
  15. LISINOPRIL TAB [Concomitant]
  16. MAGNESIUM TAB [Concomitant]
  17. METFORMIN TAB [Concomitant]
  18. METJPCARBA, [Concomitant]
  19. MOUNJARO INJ [Concomitant]
  20. MUCUS RELIEF TAB DM COUGH [Concomitant]
  21. OXYCODONE TAB [Concomitant]
  22. PANTOPRAZOLE TAB [Concomitant]
  23. PIOGLITAZONE TAB [Concomitant]
  24. PRENATAL 19 [Concomitant]
     Active Substance: .ALPHA.-TOCOPHEROL ACETATE, DL-\.BETA.-CAROTENE\ASCORBIC ACID\CALCIUM CARBONATE\CALCIUM PANTOTHENATE
  25. PROBIOTIC TAB [Concomitant]
  26. STOOL SOFTNR CAP [Concomitant]
  27. TUMERIC CAP [Concomitant]
  28. VITAMIN D TAB [Concomitant]
  29. ZINC OXIDE POW [Concomitant]

REACTIONS (10)
  - Discomfort [None]
  - Sleep disorder [None]
  - Rash [None]
  - Loss of personal independence in daily activities [None]
  - Pain [None]
  - Fatigue [None]
  - Nausea [None]
  - Vomiting [None]
  - Intentional dose omission [None]
  - Psoriatic arthropathy [None]
